FAERS Safety Report 5001789-3 (Version None)
Quarter: 2006Q2

REPORT INFORMATION
  Report Type: 
  Country: None (occurrence: None)
  Receive Date: 20060515
  Receipt Date: 20060509
  Transmission Date: 20061013
  Serious: Yes (Other)
  Sender: FDA-Public Use
  Company Number: CA-SOLVAY-00206001532

PATIENT
  Age: 35 Year
  Sex: Female

DRUGS (2)
  1. UTROGESTAN [Suspect]
     Indication: PROPHYLAXIS
     Dosage: DAILY DOSE: 400 MILLIGRAM(S)
     Route: 048
     Dates: start: 20060201, end: 20060201
  2. UTROGESTAN [Suspect]
     Dosage: DAILY DOSE:  UNKNOWN
     Route: 065

REACTIONS (9)
  - ABDOMINAL DISTENSION [None]
  - ABORTION SPONTANEOUS [None]
  - ANTEPARTUM HAEMORRHAGE [None]
  - ANXIETY [None]
  - DRUG EXPOSURE DURING PREGNANCY [None]
  - DRY MOUTH [None]
  - FATIGUE [None]
  - INSOMNIA [None]
  - WEIGHT INCREASED [None]
